FAERS Safety Report 14076646 (Version 1)
Quarter: 2017Q4

REPORT INFORMATION
  Report Type: Other
  Country: US (occurrence: US)
  Receive Date: 20171011
  Receipt Date: 20171011
  Transmission Date: 20180321
  Serious: Yes (Hospitalization)
  Sender: FDA-Public Use
  Company Number: US-LEADIANT BIOSCIENCES INC-2017STPI000734

PATIENT
  Sex: Male

DRUGS (13)
  1. MATULANE [Suspect]
     Active Substance: PROCARBAZINE HYDROCHLORIDE
     Indication: SPINAL CORD NEOPLASM
     Dosage: 50 MG, UNK
     Route: 048
     Dates: start: 20161223
  2. LOMUSTINE. [Concomitant]
     Active Substance: LOMUSTINE
  3. SENNA                              /00142201/ [Concomitant]
     Active Substance: SENNA LEAF
  4. MIRALAX [Concomitant]
     Active Substance: POLYETHYLENE GLYCOL 3350
  5. ASPIRIN                            /00002701/ [Concomitant]
     Active Substance: ASPIRIN
  6. THIOGUANINE [Concomitant]
     Active Substance: THIOGUANINE
  7. MULTIVITAMIN                       /00097801/ [Concomitant]
     Active Substance: VITAMINS
  8. COLACE [Concomitant]
     Active Substance: DOCUSATE SODIUM
  9. LEXAPRO [Concomitant]
     Active Substance: ESCITALOPRAM OXALATE
  10. BACTRIM [Concomitant]
     Active Substance: SULFAMETHOXAZOLE\TRIMETHOPRIM
  11. DUOCAL [Concomitant]
  12. ATIVAN [Concomitant]
     Active Substance: LORAZEPAM
  13. ZOFRAN [Concomitant]
     Active Substance: ONDANSETRON HYDROCHLORIDE

REACTIONS (1)
  - Transient ischaemic attack [None]
